FAERS Safety Report 16660161 (Version 1)
Quarter: 2019Q3

REPORT INFORMATION
  Report Type: Spontaneous
  Country: US (occurrence: US)
  Receive Date: 20190802
  Receipt Date: 20190802
  Transmission Date: 20191004
  Serious: No
  Sender: FDA-Public Use
  Company Number: US-AMGEN-USASP2019121949

PATIENT
  Sex: Female

DRUGS (1)
  1. NEULASTA [Suspect]
     Active Substance: PEGFILGRASTIM
     Indication: NEUTROPENIA
     Dosage: 6 MILLIGRAM
     Route: 065
     Dates: start: 20190722

REACTIONS (7)
  - Pain in jaw [Recovering/Resolving]
  - Musculoskeletal chest pain [Recovering/Resolving]
  - Toothache [Recovering/Resolving]
  - Sinus pain [Recovering/Resolving]
  - Mastication disorder [Recovering/Resolving]
  - Bone pain [Recovering/Resolving]
  - Hyperaesthesia teeth [Recovering/Resolving]

NARRATIVE: CASE EVENT DATE: 20190724
